FAERS Safety Report 8810292 (Version 2)
Quarter: 2013Q1

REPORT INFORMATION
  Report Type: Spontaneous
  Country: US (occurrence: US)
  Receive Date: 20120926
  Receipt Date: 20130131
  Transmission Date: 20140127
  Serious: Yes (Other)
  Sender: FDA-Public Use
  Company Number: US-009507513-1208USA007204

PATIENT
  Sex: Female

DRUGS (3)
  1. PEG-INTRON [Suspect]
     Indication: HEPATITIS C
     Dosage: UNK
     Dates: start: 20120224, end: 20130110
  2. REBETOL [Suspect]
     Indication: HEPATITIS C
     Dosage: UNK
     Route: 048
     Dates: start: 20120224, end: 20130110
  3. VICTRELIS [Suspect]
     Indication: HEPATITIS C
     Dosage: UNK
     Route: 048
     Dates: start: 20120324, end: 20130110

REACTIONS (6)
  - Bone marrow failure [Unknown]
  - Platelet count decreased [Unknown]
  - Anaemia [Unknown]
  - Skin disorder [Unknown]
  - Blood disorder [Unknown]
  - Lymphatic disorder [Unknown]
